FAERS Safety Report 7146550-9 (Version None)
Quarter: 2010Q4

REPORT INFORMATION
  Report Type: 
  Country: None (occurrence: None)
  Receive Date: 20101208
  Receipt Date: 20101203
  Transmission Date: 20110411
  Serious: Yes (Hospitalization)
  Sender: FDA-Public Use
  Company Number: US-PFIZER INC-US-WYE-H18038710

PATIENT
  Sex: Female
  Weight: 83.9 kg

DRUGS (7)
  1. PRISTIQ [Suspect]
     Indication: DEPRESSION
     Dosage: 50 MG, 1X/DAY
     Route: 048
     Dates: start: 20100901
  2. PRISTIQ [Suspect]
     Indication: OBSESSIVE-COMPULSIVE DISORDER
  3. CARBIDOPA + LEVODOPA [Concomitant]
  4. KLONOPIN [Concomitant]
     Indication: ANXIETY
     Dosage: 1 MG, UNK
  5. KLONOPIN [Concomitant]
     Indication: SLEEP DISORDER
     Dosage: 0.2 MG, AS NEEDED
  6. WELLBUTRIN [Concomitant]
     Indication: DEPRESSION
  7. WELLBUTRIN [Concomitant]
     Indication: OBSESSIVE-COMPULSIVE DISORDER

REACTIONS (3)
  - CHONDROCALCINOSIS PYROPHOSPHATE [None]
  - DRUG INEFFECTIVE [None]
  - LOCALISED INFECTION [None]
